FAERS Safety Report 24714591 (Version 1)
Quarter: 2024Q4

REPORT INFORMATION
  Report Type: Spontaneous
  Country: CN (occurrence: CN)
  Receive Date: 20241209
  Receipt Date: 20241209
  Transmission Date: 20250115
  Serious: Yes (Life-Threatening)
  Sender: RANBAXY
  Company Number: CN-SUN PHARMACEUTICAL INDUSTRIES LTD-2024R1-482074

PATIENT
  Age: 54 Year
  Sex: Female
  Weight: 55 kg

DRUGS (1)
  1. PALIPERIDONE [Suspect]
     Active Substance: PALIPERIDONE
     Indication: Psychotic symptom
     Dosage: 1.5 MILLIGRAM, QD
     Route: 048
     Dates: start: 20240222, end: 20241117

REACTIONS (1)
  - Cardiac function test abnormal [Not Recovered/Not Resolved]

NARRATIVE: CASE EVENT DATE: 20241117
